FAERS Safety Report 9516952 (Version 1)
Quarter: 2013Q3

REPORT INFORMATION
  Report Type: Spontaneous
  Country: US (occurrence: US)
  Receive Date: 20130911
  Receipt Date: 20130911
  Transmission Date: 20140515
  Serious: No
  Sender: FDA-Public Use
  Company Number: US-PFIZER INC-2013259975

PATIENT
  Age: 58 Year
  Sex: Female
  Weight: 90.7 kg

DRUGS (7)
  1. CELEBREX [Suspect]
     Indication: ARTHRITIS
     Dosage: UNK
  2. VIOXX [Suspect]
     Dosage: UNK
  3. VERAPAMIL [Concomitant]
     Dosage: 90 MG, UNK
  4. CYCLOBENZAPRINE [Concomitant]
     Dosage: 10 MG, UNK
  5. HYDROCODONE W/ACETAMINOPHEN [Concomitant]
     Dosage: UNK
  6. AMBIEN [Concomitant]
     Dosage: UNK
  7. CRESTOR [Concomitant]
     Dosage: UNK

REACTIONS (2)
  - Gastric disorder [Unknown]
  - Abdominal pain upper [Unknown]
